FAERS Safety Report 7178698-7 (Version None)
Quarter: 2010Q4

REPORT INFORMATION
  Report Type: 
  Country: None (occurrence: None)
  Receive Date: 20101221
  Receipt Date: 20090811
  Transmission Date: 20110411
  Serious: No
  Sender: FDA-Public Use
  Company Number: 2009BI025460

PATIENT
  Sex: Female

DRUGS (2)
  1. TYSABRI [Suspect]
     Indication: MULTIPLE SCLEROSIS
     Route: 042
     Dates: start: 20090710
  2. BENADRYL [Concomitant]

REACTIONS (11)
  - ASTHENIA [None]
  - ENERGY INCREASED [None]
  - FATIGUE [None]
  - HEADACHE [None]
  - INFUSION SITE HAEMATOMA [None]
  - NASOPHARYNGITIS [None]
  - NAUSEA [None]
  - PAIN [None]
  - PAIN IN EXTREMITY [None]
  - POOR VENOUS ACCESS [None]
  - SUNBURN [None]
